FAERS Safety Report 6874864-6 (Version None)
Quarter: 2010Q3

REPORT INFORMATION
  Report Type: 
  Country: None (occurrence: None)
  Receive Date: 20100723
  Receipt Date: 20100715
  Transmission Date: 20110219
  Serious: Yes (Hospitalization)
  Sender: FDA-Public Use
  Company Number: 7011321

PATIENT
  Age: 48 Year
  Sex: Female

DRUGS (4)
  1. REBIF [Suspect]
     Indication: RELAPSING-REMITTING MULTIPLE SCLEROSIS
     Dosage: 22 MCG, 3 IN 1 WK, SUBCUTANEOUS
     Route: 058
     Dates: start: 20091124
  2. SINGOMIGRAN (PIZOTIFEN MALEAT) [Concomitant]
  3. ALPRAZOLAM [Concomitant]
  4. OLCADIL (CLOXAZOLAM) [Concomitant]

REACTIONS (3)
  - DIZZINESS [None]
  - FIBROSIS [None]
  - SHOULDER OPERATION [None]
